FAERS Safety Report 7411940-3 (Version None)
Quarter: 2011Q2

REPORT INFORMATION
  Report Type: 
  Country: None (occurrence: None)
  Receive Date: 20110405
  Receipt Date: 20110321
  Transmission Date: 20111010
  Serious: Yes (Hospitalization, Disabling)
  Sender: FDA-Public Use
  Company Number: 2011AP000504

PATIENT
  Age: 66 Year
  Sex: Male

DRUGS (10)
  1. LEVOTHYROXINE (LEVOTHYROXINE) [Concomitant]
  2. PREDNISOLONE [Concomitant]
  3. CARBOCISTEINE (CARBOCISTEINE) [Concomitant]
  4. LEFLUNOMIDE [Suspect]
     Indication: PRODUCT USED FOR UNKNOWN INDICATION
  5. ACETYLSALICYLIC ACID (ACETYLSALICYLIC ACID) [Concomitant]
  6. ALENDRONATE SODIUM [Concomitant]
  7. SIMVASTATIN [Concomitant]
  8. VITAMIN B NOS (VITAMIN B NOS) [Concomitant]
  9. METHOTREXATE [Concomitant]
  10. THIAMINE (THIAMINE) [Concomitant]

REACTIONS (1)
  - PROGRESSIVE MULTIFOCAL LEUKOENCEPHALOPATHY [None]
